FAERS Safety Report 14275868 (Version 1)
Quarter: 2017Q4

REPORT INFORMATION
  Report Type: Spontaneous
  Country: GB (occurrence: GB)
  Receive Date: 20171212
  Receipt Date: 20171212
  Transmission Date: 20180321
  Serious: Yes (Other)
  Sender: FDA-Public Use
  Company Number: GB-AUROBINDO-AUR-APL-2017-44475

PATIENT
  Age: 65 Year
  Sex: Female

DRUGS (8)
  1. RAMIPRIL. [Suspect]
     Active Substance: RAMIPRIL
     Indication: HYPERTENSION
     Route: 065
  2. QUININE [Concomitant]
     Active Substance: QUININE
     Indication: PRODUCT USED FOR UNKNOWN INDICATION
  3. VENLABLUE [Concomitant]
     Indication: PRODUCT USED FOR UNKNOWN INDICATION
  4. OMEPRAZOLE. [Concomitant]
     Active Substance: OMEPRAZOLE
  5. GAVISCON                           /00237601/ [Concomitant]
     Active Substance: ALUMINUM HYDROXIDE\MAGNESIUM CARBONATE
     Indication: PRODUCT USED FOR UNKNOWN INDICATION
  6. LEVOTHYROXINE. [Concomitant]
     Active Substance: LEVOTHYROXINE
     Indication: PRODUCT USED FOR UNKNOWN INDICATION
  7. SPIRIVA [Concomitant]
     Active Substance: TIOTROPIUM BROMIDE MONOHYDRATE
  8. VENTOLIN [Concomitant]
     Active Substance: ALBUTEROL SULFATE
     Indication: PRODUCT USED FOR UNKNOWN INDICATION

REACTIONS (41)
  - Gingival pain [Unknown]
  - Peripheral coldness [Unknown]
  - Asthenia [Unknown]
  - Mental impairment [Unknown]
  - Faeces discoloured [Unknown]
  - Skin hypertrophy [Not Recovered/Not Resolved]
  - Hypogeusia [Unknown]
  - Dyspnoea [Recovering/Resolving]
  - Urticaria [Unknown]
  - Tinnitus [Not Recovered/Not Resolved]
  - Abdominal discomfort [Unknown]
  - Eye pruritus [Not Recovered/Not Resolved]
  - Gingival bleeding [Unknown]
  - Abdominal pain [Unknown]
  - Constipation [Unknown]
  - Wheezing [Recovering/Resolving]
  - Eyelid margin crusting [Not Recovered/Not Resolved]
  - Hypoglycaemia [Unknown]
  - Ocular hyperaemia [Not Recovered/Not Resolved]
  - Diarrhoea [Not Recovered/Not Resolved]
  - Blood pressure decreased [Unknown]
  - Vomiting [Not Recovered/Not Resolved]
  - Tremor [Not Recovered/Not Resolved]
  - Weight decreased [Unknown]
  - Fluid intake reduced [Unknown]
  - Feeling abnormal [Not Recovered/Not Resolved]
  - Decreased appetite [Not Recovered/Not Resolved]
  - Hyperhidrosis [Unknown]
  - Cough [Unknown]
  - Depression [Unknown]
  - Onycholysis [Not Recovered/Not Resolved]
  - Sensation of foreign body [Unknown]
  - Amnesia [Unknown]
  - Nasal dryness [Not Recovered/Not Resolved]
  - Ear pain [Unknown]
  - Glossitis [Unknown]
  - Somnolence [Unknown]
  - Rash [Unknown]
  - Dysuria [Unknown]
  - Abnormal faeces [Unknown]
  - Raynaud^s phenomenon [Unknown]

NARRATIVE: CASE EVENT DATE: 201503
